FAERS Safety Report 12633845 (Version 1)
Quarter: 2016Q3

REPORT INFORMATION
  Report Type: Spontaneous
  Country: US (occurrence: None)
  Receive Date: 20160808
  Receipt Date: 20160808
  Transmission Date: 20161109
  Serious: Yes (Hospitalization, Other)
  Sender: FDA-Public Use
  Company Number: None

PATIENT
  Age: 89 Year
  Sex: Female
  Weight: 71.22 kg

DRUGS (13)
  1. CLONIDINE. [Concomitant]
     Active Substance: CLONIDINE
  2. FUROSEMIDE. [Concomitant]
     Active Substance: FUROSEMIDE
  3. POTA CHLORIDE [Concomitant]
  4. CRANBERRY. [Concomitant]
     Active Substance: CRANBERRY
  5. LEVOTHYROXINE. [Concomitant]
     Active Substance: LEVOTHYROXINE
  6. ATENOLOL. [Concomitant]
     Active Substance: ATENOLOL
  7. VITAMIN B12 [Concomitant]
     Active Substance: CYANOCOBALAMIN
  8. PROBIOTIC [Concomitant]
     Active Substance: PROBIOTICS NOS
  9. AMLODIPINE [Concomitant]
     Active Substance: AMLODIPINE BESYLATE
  10. ENALAPRIL [Concomitant]
     Active Substance: ENALAPRIL
  11. FISH OIL [Concomitant]
     Active Substance: FISH OIL
  12. CIPROFLOXACN 500MG TAB WEST-WARD; GENERIC FOR CIPRO 500MG [Suspect]
     Active Substance: CIPROFLOXACIN HYDROCHLORIDE
     Indication: URINARY TRACT INFECTION
     Dosage: TOTAL 2 PILLS 2X^S A DAY: 1 PILL 2X^S BY MOUTH
     Route: 048
     Dates: start: 20160509, end: 20160518
  13. ASPIRIN. [Concomitant]
     Active Substance: ASPIRIN

REACTIONS (4)
  - Renal failure [None]
  - Disorientation [None]
  - Asthenia [None]
  - Dehydration [None]

NARRATIVE: CASE EVENT DATE: 20160518
